FAERS Safety Report 12676373 (Version 1)
Quarter: 2016Q3

REPORT INFORMATION
  Report Type: Spontaneous
  Country: US (occurrence: None)
  Receive Date: 20160822
  Receipt Date: 20160822
  Transmission Date: 20161109
  Serious: Yes (Hospitalization)
  Sender: FDA-Public Use
  Company Number: None

PATIENT
  Age: 69 Year
  Sex: Male
  Weight: 100.8 kg

DRUGS (1)
  1. DARATUMUMAB [Suspect]
     Active Substance: DARATUMUMAB
     Indication: PLASMA CELL MYELOMA
     Route: 042
     Dates: start: 20160106, end: 20160414

REACTIONS (4)
  - Dyspnoea exertional [None]
  - Tachycardia [None]
  - Tachypnoea [None]
  - Condition aggravated [None]

NARRATIVE: CASE EVENT DATE: 20160420
